FAERS Safety Report 15366792 (Version 1)
Quarter: 2018Q3

REPORT INFORMATION
  Report Type: Spontaneous
  Country: US (occurrence: US)
  Receive Date: 20180902
  Receipt Date: 20180902
  Transmission Date: 20181010
  Serious: Yes (Other)
  Sender: FDA-Public Use
  Company Number: None

PATIENT
  Age: 48 Year
  Sex: Female
  Weight: 51.75 kg

DRUGS (3)
  1. VITAMIN D [Concomitant]
     Active Substance: CHOLECALCIFEROL
  2. BUTALBITAL, ASPIRIN, CAFFIENE [Suspect]
     Active Substance: ASPIRIN\BUTALBITAL\CAFFEINE
     Indication: HEADACHE
     Dosage: ?          OTHER STRENGTH:STANDARD;QUANTITY:30 DF DOSAGE FORM;?
     Route: 048
  3. COQ10 [Concomitant]
     Active Substance: UBIDECARENONE

REACTIONS (4)
  - Product substitution issue [None]
  - Abdominal distension [None]
  - Dyspepsia [None]
  - Blood urine present [None]
